FAERS Safety Report 18330609 (Version 3)
Quarter: 2020Q4

REPORT INFORMATION
  Report Type: Spontaneous
  Country: US (occurrence: US)
  Receive Date: 20200930
  Receipt Date: 20201015
  Transmission Date: 20210113
  Serious: Yes (Hospitalization)
  Sender: FDA-Public Use
  Company Number: US-SEATTLE GENETICS-2020SGN03569

PATIENT
  Sex: Female

DRUGS (1)
  1. TUKYSA [Suspect]
     Active Substance: TUCATINIB
     Indication: BREAST CANCER FEMALE
     Dosage: UNK, BID

REACTIONS (8)
  - Dyspepsia [Unknown]
  - Hydronephrosis [Unknown]
  - Gastrointestinal disorder [Unknown]
  - Asthenia [Unknown]
  - Unevaluable event [Unknown]
  - Blood bilirubin increased [Unknown]
  - Nausea [Unknown]
  - Presyncope [Unknown]
